FAERS Safety Report 14498310 (Version 1)
Quarter: 2018Q1

REPORT INFORMATION
  Report Type: Spontaneous
  Country: US (occurrence: US)
  Receive Date: 20180206
  Receipt Date: 20180206
  Transmission Date: 20180509
  Serious: Yes (Disabling)
  Sender: FDA-Public Use
  Company Number: None

PATIENT
  Age: 49 Year
  Sex: Female
  Weight: 76.5 kg

DRUGS (1)
  1. GADOLINIUM [Suspect]
     Active Substance: GADOLINIUM
     Indication: NUCLEAR MAGNETIC RESONANCE IMAGING SPINAL
     Route: 042
     Dates: start: 20180129

REACTIONS (16)
  - Feeling abnormal [None]
  - Contrast media allergy [None]
  - Feeling cold [None]
  - Sleep disorder [None]
  - Hunger [None]
  - Headache [None]
  - Fatigue [None]
  - Diarrhoea [None]
  - Abnormal faeces [None]
  - Visual impairment [None]
  - Somnolence [None]
  - Dizziness [None]
  - Impaired driving ability [None]
  - Dysuria [None]
  - Nausea [None]
  - Burning sensation [None]

NARRATIVE: CASE EVENT DATE: 20180129
